FAERS Safety Report 8244871-X (Version None)
Quarter: 2012Q1

REPORT INFORMATION
  Report Type: 
  Country: None (occurrence: None)
  Receive Date: 20120329
  Receipt Date: 20110818
  Transmission Date: 20120608
  Serious: No
  Sender: FDA-Public Use
  Company Number: US-MYLANLABS-2011S1015166

PATIENT
  Age: 73 Year
  Sex: Male
  Weight: 53.52 kg

DRUGS (8)
  1. FENTANYL-100 [Suspect]
     Indication: BACK PAIN
     Dosage: CHANGED Q72H
     Route: 062
  2. FENTANYL-100 [Suspect]
     Dosage: CHANGED Q72H
     Route: 062
  3. TOPROL-XL [Concomitant]
     Indication: BLOOD PRESSURE
     Route: 048
  4. FENTANYL-100 [Suspect]
     Indication: PAIN
     Dosage: CHANGED Q72H
     Route: 062
  5. PERCOCET [Concomitant]
     Indication: BREAKTHROUGH PAIN
  6. FENTANYL-100 [Suspect]
     Dosage: CHANGED Q72H
     Route: 062
  7. DIAZEPAM [Concomitant]
     Indication: BREAKTHROUGH PAIN
  8. ZYRTEC [Concomitant]

REACTIONS (7)
  - ABDOMINAL PAIN [None]
  - WEIGHT DECREASED [None]
  - DIZZINESS [None]
  - CONFUSIONAL STATE [None]
  - SKIN BURNING SENSATION [None]
  - HYPERHIDROSIS [None]
  - MUSCLE SPASMS [None]
